FAERS Safety Report 21732682 (Version 1)
Quarter: 2022Q4

REPORT INFORMATION
  Report Type: Report from Study
  Country: US (occurrence: US)
  Receive Date: 20221215
  Receipt Date: 20221215
  Transmission Date: 20230113
  Serious: Yes (Other)
  Sender: FDA-Public Use
  Company Number: US-UCBSA-2022070282

PATIENT
  Sex: Female

DRUGS (1)
  1. LEVETIRACETAM [Suspect]
     Active Substance: LEVETIRACETAM
     Indication: Seizure
     Dosage: 200 MILLIGRAM, 3X/DAY (TID), (200MG 2 TABS IN AM AND 1 TAB IN PM)

REACTIONS (5)
  - Seizure [Unknown]
  - Product use issue [Unknown]
  - Therapy interrupted [Unknown]
  - Tongue biting [Unknown]
  - Swollen tongue [Unknown]
